FAERS Safety Report 12231082 (Version 2)
Quarter: 2016Q2

REPORT INFORMATION
  Report Type: Spontaneous
  Country: US (occurrence: US)
  Receive Date: 20160401
  Receipt Date: 20160505
  Transmission Date: 20160815
  Serious: No
  Sender: FDA-Public Use
  Company Number: US-LUNDBECK-DKLU2011382

PATIENT
  Sex: Male

DRUGS (2)
  1. NORTHERA [Suspect]
     Active Substance: DROXIDOPA
     Route: 065
  2. NORTHERA [Suspect]
     Active Substance: DROXIDOPA
     Indication: PRODUCT USED FOR UNKNOWN INDICATION
     Dosage: ON TITRATION SCHEDULE
     Route: 065

REACTIONS (9)
  - Balance disorder [Unknown]
  - Tremor [Unknown]
  - Blood pressure decreased [Unknown]
  - Condition aggravated [Unknown]
  - Syncope [Unknown]
  - Blood pressure increased [Unknown]
  - Speech disorder [Unknown]
  - Dizziness [Unknown]
  - Gait disturbance [Unknown]
